FAERS Safety Report 12504000 (Version 1)
Quarter: 2016Q2

REPORT INFORMATION
  Report Type: Spontaneous
  Country: FR (occurrence: FR)
  Receive Date: 20160628
  Receipt Date: 20160628
  Transmission Date: 20160815
  Serious: Yes (Other)
  Sender: FDA-Public Use
  Company Number: FR-PFIZER INC-2016311153

PATIENT
  Age: 65 Year
  Sex: Male

DRUGS (1)
  1. RELPAX [Suspect]
     Active Substance: ELETRIPTAN HYDROBROMIDE
     Indication: MIGRAINE
     Dosage: AROUND ONE TABLET EVERY 4 DAYS
     Dates: start: 2012, end: 201511

REACTIONS (5)
  - Hypertension [Unknown]
  - Arterial occlusive disease [Unknown]
  - Myocardial infarction [Unknown]
  - Thinking abnormal [Unknown]
  - Negative thoughts [Unknown]

NARRATIVE: CASE EVENT DATE: 201511
